FAERS Safety Report 22393186 (Version 1)
Quarter: 2023Q2

REPORT INFORMATION
  Report Type: Spontaneous
  Country: US (occurrence: US)
  Receive Date: 20230601
  Receipt Date: 20230601
  Transmission Date: 20230722
  Serious: No
  Sender: FDA-Public Use
  Company Number: US-ELI_LILLY_AND_COMPANY-US202305017561

PATIENT
  Sex: Male

DRUGS (3)
  1. MOUNJARO [Suspect]
     Active Substance: TIRZEPATIDE
     Indication: Type 2 diabetes mellitus
     Dosage: UNK UNK, UNKNOWN
     Route: 065
     Dates: start: 202212
  2. MOUNJARO [Suspect]
     Active Substance: TIRZEPATIDE
     Indication: Type 2 diabetes mellitus
     Dosage: 7.5 MG, UNKNOWN
     Route: 065
  3. METFORMIN [Concomitant]
     Active Substance: METFORMIN HYDROCHLORIDE
     Indication: Type 2 diabetes mellitus

REACTIONS (2)
  - Incorrect dose administered [Unknown]
  - Injection site pain [Recovered/Resolved]
